FAERS Safety Report 7087027-9 (Version None)
Quarter: 2010Q4

REPORT INFORMATION
  Report Type: 
  Country: None (occurrence: None)
  Receive Date: 20101106
  Receipt Date: 20101018
  Transmission Date: 20110411
  Serious: No
  Sender: FDA-Public Use
  Company Number: US-WYE-H18235810

PATIENT
  Age: 54 Year
  Sex: Female
  Weight: 54.48 kg

DRUGS (1)
  1. ADVIL COLD AND SINUS [Suspect]
     Indication: NASOPHARYNGITIS
     Dosage: TWO CAPLETS DAILY
     Route: 048
     Dates: start: 20101011, end: 20101017

REACTIONS (1)
  - DRUG INEFFECTIVE [None]
